FAERS Safety Report 7373547-6 (Version None)
Quarter: 2011Q1

REPORT INFORMATION
  Report Type: 
  Country: None (occurrence: None)
  Receive Date: 20110325
  Receipt Date: 20091008
  Transmission Date: 20110831
  Serious: No
  Sender: FDA-Public Use
  Company Number: 2009BI032818

PATIENT
  Age: 44 Year
  Sex: Female

DRUGS (1)
  1. TYSABRI [Suspect]
     Indication: MULTIPLE SCLEROSIS
     Route: 042
     Dates: start: 20090616, end: 20100225

REACTIONS (9)
  - MYALGIA [None]
  - PRURITUS [None]
  - VAGINAL INFECTION [None]
  - URTICARIA [None]
  - RASH [None]
  - FATIGUE [None]
  - FLUSHING [None]
  - HEADACHE [None]
  - ABDOMINAL PAIN UPPER [None]
